FAERS Safety Report 9278529 (Version 2)
Quarter: 2013Q2

REPORT INFORMATION
  Report Type: Spontaneous
  Country: US (occurrence: US)
  Receive Date: 20130507
  Receipt Date: 20130517
  Transmission Date: 20140414
  Serious: Yes (Hospitalization, Other)
  Sender: FDA-Public Use
  Company Number: US-RB-053138-13

PATIENT
  Age: 47 Year
  Sex: Female

DRUGS (5)
  1. SUBOXONE FILM [Suspect]
     Indication: DRUG DEPENDENCE
     Dosage: SUBOXONE FILM
     Route: 060
  2. LEXAPRO [Concomitant]
     Indication: DEPRESSION
     Dosage: DOSING DETAILS NOT PROVIDED
     Route: 065
  3. LITHIUM [Concomitant]
     Indication: DEPRESSION
     Dosage: DOSING DETAILS NOT PROVIDED
     Route: 065
  4. ELAVIL [Concomitant]
     Indication: DEPRESSION
     Dosage: DOSING DETAILS NOT PROVIDED
     Route: 065
  5. ABILIFY [Concomitant]
     Indication: DEPRESSION
     Dosage: DOSING DETAILS NOT PROVIDED
     Route: 065

REACTIONS (2)
  - Suicide attempt [Recovered/Resolved]
  - Wrong technique in drug usage process [Recovered/Resolved]
